FAERS Safety Report 20578711 (Version 3)
Quarter: 2024Q3

REPORT INFORMATION
  Report Type: Spontaneous
  Country: US (occurrence: US)
  Receive Date: 20220310
  Receipt Date: 20240819
  Transmission Date: 20241017
  Serious: Yes (Disabling)
  Sender: ORGANON
  Company Number: US-ORGANON-O2203USA000851

PATIENT
  Sex: Male

DRUGS (2)
  1. SINGULAIR [Suspect]
     Active Substance: MONTELUKAST SODIUM
     Indication: Asthma
     Dosage: 10 MILLIGRAM
     Route: 048
     Dates: start: 2012, end: 202005
  2. SINGULAIR [Suspect]
     Active Substance: MONTELUKAST SODIUM
     Indication: Hypersensitivity

REACTIONS (10)
  - Neuropsychological symptoms [Not Recovered/Not Resolved]
  - Amnesia [Not Recovered/Not Resolved]
  - Mood swings [Not Recovered/Not Resolved]
  - Dysphemia [Not Recovered/Not Resolved]
  - Migraine [Not Recovered/Not Resolved]
  - Anxiety [Not Recovered/Not Resolved]
  - Depression [Not Recovered/Not Resolved]
  - Adjustment disorder with mixed anxiety and depressed mood [Unknown]
  - Blood pressure increased [Unknown]
  - Sleep apnoea syndrome [Unknown]

NARRATIVE: CASE EVENT DATE: 20120101
